FAERS Safety Report 10744927 (Version 1)
Quarter: 2015Q1

REPORT INFORMATION
  Report Type: Spontaneous
  Country: US (occurrence: None)
  Receive Date: 20150126
  Receipt Date: 20150126
  Transmission Date: 20150721
  Serious: No
  Sender: FDA-Public Use
  Company Number: None

PATIENT
  Age: 18 Year
  Sex: Female
  Weight: 54.43 kg

DRUGS (1)
  1. ORTHO TRI CYCLEN LO [Suspect]
     Active Substance: ETHINYL ESTRADIOL\NORGESTIMATE
     Indication: CONTRACEPTION
     Dosage: ONCE DAILY
     Dates: start: 20080101, end: 20120531

REACTIONS (4)
  - Libido decreased [None]
  - Headache [None]
  - Fatigue [None]
  - Asthenia [None]
